FAERS Safety Report 19506619 (Version 3)
Quarter: 2021Q3

REPORT INFORMATION
  Report Type: Spontaneous
  Country: IL (occurrence: IL)
  Receive Date: 20210708
  Receipt Date: 20210813
  Transmission Date: 20211014
  Serious: Yes (Hospitalization)
  Sender: FDA-Public Use
  Company Number: IL-CELGENEUS-ISR-20210700536

PATIENT
  Age: 85 Year
  Sex: Female
  Weight: 74 kg

DRUGS (28)
  1. EZECOR [Concomitant]
     Indication: HYPERLIPIDAEMIA
     Dosage: 10 MILLIGRAM
     Route: 048
     Dates: start: 200503
  2. AZACITIDINE. [Suspect]
     Active Substance: AZACITIDINE
     Indication: MYELODYSPLASTIC SYNDROME
     Dosage: 75 MILLIGRAM/SQ. METER
     Route: 058
     Dates: start: 20201206, end: 20210513
  3. ALLOPURINOL. [Concomitant]
     Active Substance: ALLOPURINOL
     Indication: PROPHYLAXIS
     Dosage: 300MG
     Route: 048
     Dates: start: 20201103
  4. NORMALOL [Concomitant]
     Active Substance: ATENOLOL
     Indication: HYPERTENSION
     Dosage: 50 MILLIGRAM
     Route: 048
     Dates: start: 2004
  5. VITAMIN C [Concomitant]
     Active Substance: ASCORBIC ACID
     Indication: SUPPORTIVE CARE
     Dosage: 500 MILLIGRAM
     Route: 048
     Dates: start: 2019
  6. EUTHYROX [Concomitant]
     Active Substance: LEVOTHYROXINE SODIUM
     Indication: HYPOTHYROIDISM
     Dosage: 100 MICROGRAM
     Route: 048
     Dates: start: 200503
  7. VABEN [Concomitant]
     Active Substance: OXAZEPAM
     Indication: ANXIETY
     Route: 048
     Dates: start: 202003
  8. AUGMENTIN [Concomitant]
     Active Substance: AMOXICILLIN\CLAVULANATE POTASSIUM
     Indication: INFECTION
     Dosage: 1750 MILLIGRAM
     Route: 048
     Dates: start: 20210223
  9. ZYLOL [Concomitant]
     Indication: PROPHYLAXIS
     Dosage: 300 MILLIGRAM
     Route: 048
     Dates: start: 20201206
  10. VENETOCLAX. [Suspect]
     Active Substance: VENETOCLAX
     Indication: MYELODYSPLASTIC SYNDROME
     Dosage: 100 MILLIGRAM
     Route: 048
     Dates: start: 20201206, end: 20210523
  11. FUSID [Concomitant]
     Indication: OEDEMA
     Dosage: 40 MILLIGRAM
     Route: 048
     Dates: start: 202004
  12. CURCUMIN C3 [Concomitant]
     Indication: SUPPORTIVE CARE
     Dosage: 1000 MILLIGRAM
     Route: 048
     Dates: start: 2009
  13. LACTULOSE. [Concomitant]
     Active Substance: LACTULOSE
     Indication: CONSTIPATION
     Dosage: 500 MILLILITER
     Route: 048
     Dates: start: 2005
  14. PROCTO GLYVENOL [Concomitant]
     Indication: HAEMORRHOIDS
     Route: 061
     Dates: start: 202003
  15. ARTHRYL [Concomitant]
     Indication: OSTEOARTHRITIS
     Dosage: 1500 MILLIGRAM
     Route: 048
     Dates: start: 20160818
  16. AQUA CREAM [Concomitant]
     Indication: PSORIASIS
     Dosage: 100 MILLILITER
     Route: 061
     Dates: start: 202006
  17. PARACETAMOL [Concomitant]
     Active Substance: ACETAMINOPHEN
     Indication: BACK PAIN
     Route: 048
     Dates: start: 20210214
  18. CEREBONIN [Concomitant]
     Indication: AMNESIA
     Dosage: 120 MILLIGRAM
     Route: 048
     Dates: start: 202004
  19. PARACETAMOL [Concomitant]
     Active Substance: ACETAMINOPHEN
     Indication: HEADACHE
  20. NEXIUM [Concomitant]
     Active Substance: ESOMEPRAZOLE MAGNESIUM
     Indication: GASTROOESOPHAGEAL REFLUX DISEASE
     Dosage: 20 MILLIGRAM
     Route: 048
     Dates: start: 200503
  21. VIEPAX [Concomitant]
     Active Substance: VENLAFAXINE HYDROCHLORIDE
     Indication: ANXIETY
     Dosage: 75 MILLIGRAM
     Route: 048
     Dates: start: 200503
  22. COLLAGEN BOOST [Concomitant]
     Indication: SUPPORTIVE CARE
     Route: 048
     Dates: start: 2019
  23. TAVANIC [Concomitant]
     Active Substance: LEVOFLOXACIN
     Indication: INFECTION PROPHYLAXIS
     Dosage: 500 MICROGRAM/SQ. METER
     Route: 048
     Dates: start: 20210607
  24. HEXAKAPRON [Concomitant]
     Active Substance: TRANEXAMIC ACID
     Indication: HAEMORRHAGE
     Dosage: 1500 MILLIGRAM
     Route: 048
     Dates: start: 20210525
  25. STATOR [Concomitant]
     Indication: HYPERLIPIDAEMIA
     Dosage: 5 MILLIGRAM
     Route: 048
     Dates: start: 200503
  26. CLOPIDOGREL [Concomitant]
     Active Substance: CLOPIDOGREL BISULFATE
     Indication: HYPERTENSION
     Dosage: 75 MILLIGRAM
     Route: 048
     Dates: start: 2004
  27. XAMIOL [Concomitant]
     Active Substance: BETAMETHASONE DIPROPIONATE\CALCIPOTRIENE HYDRATE
     Indication: PSORIASIS
     Dosage: 30 GRAM
     Route: 061
     Dates: start: 202006
  28. PRAMIN [Concomitant]
     Indication: NAUSEA
     Route: 048
     Dates: start: 20210209

REACTIONS (1)
  - Epistaxis [Recovered/Resolved]

NARRATIVE: CASE EVENT DATE: 20210624
